FAERS Safety Report 7448452-7 (Version None)
Quarter: 2011Q2

REPORT INFORMATION
  Report Type: 
  Country: None (occurrence: None)
  Receive Date: 20110429
  Receipt Date: 20100621
  Transmission Date: 20111010
  Serious: No
  Sender: FDA-Public Use
  Company Number: US-ASTRAZENECA-2010SE28998

PATIENT
  Age: 81 Year
  Sex: Female
  Weight: 104.3 kg

DRUGS (1)
  1. NEXIUM [Suspect]
     Indication: GASTROOESOPHAGEAL REFLUX DISEASE
     Route: 048
     Dates: start: 20080101, end: 20100611

REACTIONS (3)
  - ERUCTATION [None]
  - DRUG DOSE OMISSION [None]
  - DYSPEPSIA [None]
